FAERS Safety Report 21440601 (Version 1)
Quarter: 2022Q4

REPORT INFORMATION
  Report Type: Spontaneous
  Country: US (occurrence: US)
  Receive Date: 20221011
  Receipt Date: 20221011
  Transmission Date: 20230112
  Serious: No
  Sender: FDA-Public Use
  Company Number: US-BRISTOL-MYERS SQUIBB COMPANY-2022-118234

PATIENT
  Age: 82 Year
  Sex: Female
  Weight: 83.91 kg

DRUGS (1)
  1. POMALYST [Suspect]
     Active Substance: POMALIDOMIDE
     Indication: Plasma cell myeloma
     Dosage: 3 WEEK , 1 WEEK OFF
     Route: 048

REACTIONS (4)
  - Fluid retention [Unknown]
  - Pain in extremity [Unknown]
  - Full blood count abnormal [Unknown]
  - Anaemia [Unknown]
